FAERS Safety Report 18751478 (Version 1)
Quarter: 2021Q1

REPORT INFORMATION
  Report Type: Spontaneous
  Country: US (occurrence: US)
  Receive Date: 20210118
  Receipt Date: 20210118
  Transmission Date: 20210419
  Serious: Yes (Other)
  Sender: FDA-Public Use
  Company Number: US-SHILPA MEDICARE LIMITED-SML-US-2021-00029

PATIENT
  Age: 2 Year
  Sex: Male

DRUGS (2)
  1. BUSULFAN, UNKNOWN [Suspect]
     Active Substance: BUSULFAN
     Indication: ACUTE MYELOID LEUKAEMIA REFRACTORY
     Route: 065
  2. FLUDARABINE [Suspect]
     Active Substance: FLUDARABINE PHOSPHATE
     Indication: ACUTE MYELOID LEUKAEMIA REFRACTORY
     Route: 065

REACTIONS (8)
  - Tubulointerstitial nephritis [Unknown]
  - Thrombotic microangiopathy [Unknown]
  - Pericardial effusion [Unknown]
  - Enterococcal bacteraemia [Unknown]
  - Engraftment syndrome [Unknown]
  - Eosinophilia [Recovered/Resolved]
  - Acute graft versus host disease [Unknown]
  - Acute kidney injury [Unknown]
